FAERS Safety Report 7674536-4 (Version None)
Quarter: 2011Q3

REPORT INFORMATION
  Report Type: 
  Country: None (occurrence: None)
  Receive Date: 20110810
  Receipt Date: 20110729
  Transmission Date: 20111222
  Serious: Yes (Hospitalization)
  Sender: FDA-Public Use
  Company Number: PHHY2010FR14077

PATIENT
  Sex: Male
  Weight: 88 kg

DRUGS (5)
  1. MYCOPHENOLIC ACID [Suspect]
     Indication: RENAL TRANSPLANT
     Dosage: UNK UKN, UNK
     Dates: start: 20080824
  2. ATORVASTATIN CALCIUM [Concomitant]
     Indication: DYSLIPIDAEMIA
     Dosage: 10 MG, UNK
     Dates: start: 20090105
  3. AMLODIPINE BESYLATE [Concomitant]
     Indication: HYPERTENSION
     Dosage: 10 MG, UNK
     Dates: start: 20080916
  4. NEORAL [Suspect]
     Indication: RENAL TRANSPLANT
     Dosage: UNK UKN, UNK
     Dates: start: 20080824
  5. NOVOMIX [Concomitant]
     Indication: TYPE 2 DIABETES MELLITUS
     Dosage: UNK UKN, UNK
     Dates: start: 20081017

REACTIONS (2)
  - RENAL FAILURE ACUTE [None]
  - KIDNEY TRANSPLANT REJECTION [None]
